FAERS Safety Report 9805447 (Version 1)
Quarter: 2014Q1

REPORT INFORMATION
  Report Type: Spontaneous
  Country: US (occurrence: None)
  Receive Date: 20140107
  Receipt Date: 20140107
  Transmission Date: 20141002
  Serious: Yes (Hospitalization)
  Sender: FDA-Public Use
  Company Number: AUR-APL-2013-10917

PATIENT
  Age: 43 Year
  Sex: Female
  Weight: 73.47 kg

DRUGS (5)
  1. ATENOLOL [Suspect]
     Indication: PRODUCT USED FOR UNKNOWN INDICATION
     Route: 048
     Dates: start: 2011
  2. LISINOPRIL [Suspect]
     Indication: PRODUCT USED FOR UNKNOWN INDICATION
     Route: 048
     Dates: start: 2011
  3. BRILINTA [Suspect]
     Indication: CORONARY ARTERIAL STENT INSERTION
     Dates: start: 20131025, end: 20131026
  4. ASA (ACETYLSALICYLIC ACID) [Concomitant]
  5. ISOSORBIDE [Concomitant]

REACTIONS (5)
  - Myocardial infarction [None]
  - Haemorrhage intracranial [None]
  - Vomiting [None]
  - Nausea [None]
  - Visual impairment [None]
